FAERS Safety Report 6614181-2 (Version None)
Quarter: 2010Q1

REPORT INFORMATION
  Report Type: 
  Country: None (occurrence: None)
  Receive Date: 20100304
  Receipt Date: 20100120
  Transmission Date: 20100710
  Serious: Yes (Hospitalization)
  Sender: FDA-Public Use
  Company Number: FR-PFIZER INC-2010026166

PATIENT
  Age: 45 Year

DRUGS (5)
  1. ATARAX [Suspect]
     Indication: PREMEDICATION
     Dosage: UNK
     Route: 048
     Dates: start: 20090930, end: 20090930
  2. REMICADE [Suspect]
     Indication: CROHN'S DISEASE
     Dosage: UNK
     Route: 042
     Dates: start: 20090930, end: 20090930
  3. PNEUMO 23 [Suspect]
     Indication: PROPHYLAXIS
     Dosage: UNK
     Route: 058
     Dates: start: 20091001, end: 20091001
  4. SOLUPRED [Concomitant]
     Indication: CROHN'S DISEASE
     Route: 048
  5. IMUREL [Concomitant]
     Indication: CROHN'S DISEASE
     Route: 048

REACTIONS (3)
  - ARTHRALGIA [None]
  - RESPIRATORY DISORDER [None]
  - URTICARIA [None]
